FAERS Safety Report 8246454-4 (Version None)
Quarter: 2012Q1

REPORT INFORMATION
  Report Type: 
  Country: None (occurrence: None)
  Receive Date: 20120327
  Receipt Date: 20120305
  Transmission Date: 20120608
  Serious: Yes (Death, Hospitalization)
  Sender: FDA-Public Use
  Company Number: 2012PROUSA01153

PATIENT
  Age: 87 Year
  Sex: Male
  Weight: 62.6 kg

DRUGS (2)
  1. PROVENGE [Suspect]
     Indication: PROSTATE CANCER METASTATIC
     Dosage: 250 ML, SINGLE, INTRAVENOUS
     Route: 042
     Dates: start: 20120213, end: 20120213
  2. PROVENGE [Suspect]
     Dosage: 250 ML, SINGLE, INTRAVENOUS
     Route: 042
     Dates: start: 20120227, end: 20120227

REACTIONS (4)
  - VOMITING [None]
  - NAUSEA [None]
  - CARDIAC FAILURE CONGESTIVE [None]
  - DIARRHOEA [None]
